FAERS Safety Report 17992869 (Version 2)
Quarter: 2020Q4

REPORT INFORMATION
  Report Type: Spontaneous
  Country: US (occurrence: US)
  Receive Date: 20200708
  Receipt Date: 20201201
  Transmission Date: 20210113
  Serious: Yes (Hospitalization, Other)
  Sender: FDA-Public Use
  Company Number: US-ASTRAZENECA-2020SE83368

PATIENT
  Age: 23252 Day
  Sex: Female

DRUGS (103)
  1. NEXIUM [Suspect]
     Active Substance: ESOMEPRAZOLE MAGNESIUM
     Indication: DYSPEPSIA
     Route: 048
     Dates: start: 2004, end: 2017
  2. TYLENOL [Concomitant]
     Active Substance: ACETAMINOPHEN
     Indication: PAIN
  3. CLOBETASOL PROPIONATE. [Concomitant]
     Active Substance: CLOBETASOL PROPIONATE
  4. GABAPENTIN. [Concomitant]
     Active Substance: GABAPENTIN
  5. NUVAIL [Concomitant]
     Active Substance: DEVICE
  6. BACLOFEN. [Concomitant]
     Active Substance: BACLOFEN
  7. METANX [Concomitant]
     Active Substance: LEVOMEFOLATE CALCIUM\METHYLCOBALAMIN\PYRIDOXAL PHOSPHATE ANHYDROUS
  8. CLONIDINE HCL [Concomitant]
     Active Substance: CLONIDINE HYDROCHLORIDE
  9. TRAZODONE HYDROCHLORIDE. [Concomitant]
     Active Substance: TRAZODONE HYDROCHLORIDE
  10. CYMBALTA [Concomitant]
     Active Substance: DULOXETINE HYDROCHLORIDE
  11. CALOMIST [Concomitant]
     Active Substance: CYANOCOBALAMIN
  12. VANCOCIN [Concomitant]
     Active Substance: VANCOMYCIN HYDROCHLORIDE
  13. ZOSTAVAX [Concomitant]
     Active Substance: VARICELLA-ZOSTER VIRUS STRAIN OKA/MERCK LIVE ANTIGEN
  14. AMITRIPTYLINE HCL [Concomitant]
     Active Substance: AMITRIPTYLINE
  15. AZELASTINE. [Concomitant]
     Active Substance: AZELASTINE HYDROCHLORIDE
  16. NEXIUM [Suspect]
     Active Substance: ESOMEPRAZOLE MAGNESIUM
     Indication: GASTROOESOPHAGEAL REFLUX DISEASE
     Route: 048
     Dates: start: 2004, end: 2017
  17. TAGAMET [Concomitant]
     Active Substance: CIMETIDINE
  18. LUNESTA [Concomitant]
     Active Substance: ESZOPICLONE
  19. METOLAZONE. [Concomitant]
     Active Substance: METOLAZONE
  20. KLOR-CON [Concomitant]
     Active Substance: POTASSIUM CHLORIDE
  21. ERYTHROMYCIN. [Concomitant]
     Active Substance: ERYTHROMYCIN
  22. METRONIDAZOLE. [Concomitant]
     Active Substance: METRONIDAZOLE
  23. FENTANYL. [Concomitant]
     Active Substance: FENTANYL
  24. METHYLPREDNISOLONE. [Concomitant]
     Active Substance: METHYLPREDNISOLONE
  25. LINZESS [Concomitant]
     Active Substance: LINACLOTIDE
  26. EVZIO [Concomitant]
     Active Substance: NALOXONE HYDROCHLORIDE
  27. AMBIEN [Concomitant]
     Active Substance: ZOLPIDEM TARTRATE
  28. SUCRALFATE. [Concomitant]
     Active Substance: SUCRALFATE
  29. DILAUDID [Concomitant]
     Active Substance: HYDROMORPHONE HYDROCHLORIDE
     Indication: PAIN
     Dates: start: 2000, end: 2018
  30. HYDROXYZINE HCL [Concomitant]
     Active Substance: HYDROXYZINE HYDROCHLORIDE
  31. ACIPHEX [Concomitant]
     Active Substance: RABEPRAZOLE SODIUM
  32. ABILIFY [Concomitant]
     Active Substance: ARIPIPRAZOLE
  33. DESONIDE. [Concomitant]
     Active Substance: DESONIDE
  34. TUBERCULIN NOS [Concomitant]
     Active Substance: TUBERCULIN PURIFIED PROTEIN DERIVATIVE
  35. VALACYCLOVIR [Concomitant]
     Active Substance: VALACYCLOVIR HYDROCHLORIDE
  36. ACYCLOVIR. [Concomitant]
     Active Substance: ACYCLOVIR
  37. VOLTAREN [Concomitant]
     Active Substance: DICLOFENAC SODIUM
  38. POLYETHYLENE GLYCOL [Concomitant]
     Active Substance: POLYETHYLENE GLYCOLS
  39. LUVOX [Concomitant]
     Active Substance: FLUVOXAMINE MALEATE
  40. MAGNESIUM OXIDE. [Concomitant]
     Active Substance: MAGNESIUM OXIDE
  41. ENALAPRILAT. [Concomitant]
     Active Substance: ENALAPRILAT
  42. CELEBREX [Concomitant]
     Active Substance: CELECOXIB
     Indication: ARTHRITIS
  43. MARINOL [Concomitant]
     Active Substance: DRONABINOL
     Indication: NAUSEA
  44. LEVAQUIN [Concomitant]
     Active Substance: LEVOFLOXACIN
  45. DIPHENOXYLATE-ATROPINE [Concomitant]
     Active Substance: ATROPINE\DIPHENOXYLATE
  46. HYDROCORTISONE ACETATE. [Concomitant]
     Active Substance: HYDROCORTISONE ACETATE
  47. SULFAMETHOXAZOLE-TRIMETHOPRIM [Concomitant]
     Active Substance: SULFAMETHOXAZOLE\TRIMETHOPRIM
  48. AZITHROMYCIN ANHYDROUS. [Concomitant]
     Active Substance: AZITHROMYCIN ANHYDROUS
  49. NASONEX [Concomitant]
     Active Substance: MOMETASONE FUROATE
  50. FLUOCINOLONE ACETONIDE. [Concomitant]
     Active Substance: FLUOCINOLONE ACETONIDE
  51. LEVOTHYROXINE SODIUM. [Concomitant]
     Active Substance: LEVOTHYROXINE SODIUM
  52. LYRICA [Concomitant]
     Active Substance: PREGABALIN
  53. LATUDA [Concomitant]
     Active Substance: LURASIDONE HYDROCHLORIDE
  54. LAMISIL [Concomitant]
     Active Substance: TERBINAFINE HYDROCHLORIDE
  55. MOMETASONE [Concomitant]
     Active Substance: MOMETASONE
  56. REGLAN [Concomitant]
     Active Substance: METOCLOPRAMIDE HYDROCHLORIDE
  57. CLONIDINE. [Concomitant]
     Active Substance: CLONIDINE
     Indication: HYPERTENSION
  58. ELIQUIS [Concomitant]
     Active Substance: APIXABAN
     Indication: DIVERTICULUM
  59. MARINOL [Concomitant]
     Active Substance: DRONABINOL
     Indication: VOMITING
  60. CYCLOBENZAPRINE HCL [Concomitant]
     Active Substance: CYCLOBENZAPRINE HYDROCHLORIDE
  61. GRANISETRON HCL [Concomitant]
     Active Substance: GRANISETRON HYDROCHLORIDE
  62. VERAMYST [Concomitant]
     Active Substance: FLUTICASONE FUROATE
  63. ONDANSETRON HCL [Concomitant]
     Active Substance: ONDANSETRON HYDROCHLORIDE
  64. AMITIZA [Concomitant]
     Active Substance: LUBIPROSTONE
  65. COUMADIN [Concomitant]
     Active Substance: WARFARIN SODIUM
  66. AMLODIPINE BESYLATE. [Concomitant]
     Active Substance: AMLODIPINE BESYLATE
  67. CETIRIZINE HCL [Concomitant]
     Active Substance: CETIRIZINE HYDROCHLORIDE
  68. DIFICID [Concomitant]
     Active Substance: FIDAXOMICIN
  69. MIRTAZAPINE. [Concomitant]
     Active Substance: MIRTAZAPINE
  70. VIVOTIF [Concomitant]
     Active Substance: SALMONELLA TYPHI TY21A LIVE ANTIGEN
  71. AMLODIPINE [Concomitant]
     Active Substance: AMLODIPINE BESYLATE
     Indication: HYPERTENSION
  72. LEVOTHYROXINE. [Concomitant]
     Active Substance: LEVOTHYROXINE
     Indication: HYPOTHYROIDISM
  73. FROVA [Concomitant]
     Active Substance: FROVATRIPTAN SUCCINATE
  74. SPIRONOLACTONE. [Concomitant]
     Active Substance: SPIRONOLACTONE
  75. LOVENOX [Concomitant]
     Active Substance: ENOXAPARIN SODIUM
  76. ESTRACE [Concomitant]
     Active Substance: ESTRADIOL
  77. ECONAZOLE NITRATE. [Concomitant]
     Active Substance: ECONAZOLE NITRATE
  78. HYOSCYAMINE. [Concomitant]
     Active Substance: HYOSCYAMINE
  79. OXYCODONE [Concomitant]
     Active Substance: OXYCODONE
  80. FLAGYL [Concomitant]
     Active Substance: METRONIDAZOLE\METRONIDAZOLE HYDROCHLORIDE
  81. ZANTAC [Concomitant]
     Active Substance: RANITIDINE HYDROCHLORIDE
  82. MORPHINE SULFATE. [Concomitant]
     Active Substance: MORPHINE SULFATE
  83. FUROSEMIDE. [Concomitant]
     Active Substance: FUROSEMIDE
  84. PROMETHAZINE HCL [Concomitant]
     Active Substance: PROMETHAZINE HYDROCHLORIDE
  85. METOCLOPRAMIDE HCL [Concomitant]
     Active Substance: METOCLOPRAMIDE HYDROCHLORIDE
  86. LACTULOSE. [Concomitant]
     Active Substance: LACTULOSE
  87. AMMONIUM LACTATE. [Concomitant]
     Active Substance: AMMONIUM LACTATE
  88. COMPOUND [Concomitant]
  89. VIGAMOX [Concomitant]
     Active Substance: MOXIFLOXACIN HYDROCHLORIDE
  90. MUPIROCIN. [Concomitant]
     Active Substance: MUPIROCIN
  91. VITAMIN D2 [Concomitant]
     Active Substance: ERGOCALCIFEROL
  92. PREDNISONE. [Concomitant]
     Active Substance: PREDNISONE
  93. TOPAMAX [Concomitant]
     Active Substance: TOPIRAMATE
  94. MOVANTIK [Concomitant]
     Active Substance: NALOXEGOL OXALATE
  95. NUVIGIL [Concomitant]
     Active Substance: ARMODAFINIL
  96. HYDROCORTISONE. [Concomitant]
     Active Substance: HYDROCORTISONE
  97. NASCOBAL [Concomitant]
     Active Substance: CYANOCOBALAMIN
  98. PHENTERMINE. [Concomitant]
     Active Substance: PHENTERMINE
  99. OMNICEF [Concomitant]
     Active Substance: CEFDINIR
  100. CYCLOBENZAPRINE. [Concomitant]
     Active Substance: CYCLOBENZAPRINE
  101. PROMETHEGAN [Concomitant]
     Active Substance: PROMETHAZINE HYDROCHLORIDE
  102. WARFARIN [Concomitant]
     Active Substance: WARFARIN
  103. ENALAPRIL [Concomitant]
     Active Substance: ENALAPRIL

REACTIONS (4)
  - Acute kidney injury [Not Recovered/Not Resolved]
  - Renal failure [Unknown]
  - Chronic kidney disease [Unknown]
  - Renal tubular necrosis [Unknown]

NARRATIVE: CASE EVENT DATE: 20170507
